FAERS Safety Report 7915812-7 (Version None)
Quarter: 2011Q4

REPORT INFORMATION
  Report Type: 
  Country: None (occurrence: None)
  Receive Date: 20111115
  Receipt Date: 20111107
  Transmission Date: 20120403
  Serious: Yes (Other)
  Sender: FDA-Public Use
  Company Number: CHPA2011US015586

PATIENT
  Age: 82 Year
  Sex: Male

DRUGS (1)
  1. EXCEDRIN TENSION HEADACHE [Suspect]
     Indication: PROPHYLAXIS
     Dosage: 4 DF, QD
     Route: 048

REACTIONS (3)
  - INCORRECT DRUG ADMINISTRATION DURATION [None]
  - DRUG DEPENDENCE [None]
  - OFF LABEL USE [None]
